FAERS Safety Report 13964460 (Version 1)
Quarter: 2017Q3

REPORT INFORMATION
  Report Type: Spontaneous
  Country: US (occurrence: US)
  Receive Date: 20170913
  Receipt Date: 20170913
  Transmission Date: 20171128
  Serious: Yes (Hospitalization, Disabling)
  Sender: FDA-Public Use
  Company Number: None

PATIENT
  Age: 73 Year
  Sex: Female
  Weight: 71.2 kg

DRUGS (1)
  1. DOXORUBICIN [Suspect]
     Active Substance: DOXORUBICIN
     Indication: UTERINE CANCER
     Dosage: ?          OTHER FREQUENCY:Q3WKS X 6 CYCLES;?INTRAVENOUS (NOT OTHERWISE SPECIFIED)
     Route: 042
     Dates: start: 20140715, end: 20141104

REACTIONS (3)
  - Cardiac failure [None]
  - Cardiogenic shock [None]
  - Cardiotoxicity [None]

NARRATIVE: CASE EVENT DATE: 20160930
